FAERS Safety Report 9412609 (Version 1)
Quarter: 2013Q3

REPORT INFORMATION
  Report Type: Spontaneous
  Country: US (occurrence: US)
  Receive Date: 20130722
  Receipt Date: 20130722
  Transmission Date: 20140515
  Serious: Yes (Hospitalization)
  Sender: FDA-Public Use
  Company Number: US-BAYER-2013-086363

PATIENT
  Age: 35 Year
  Sex: Female
  Weight: 54.42 kg

DRUGS (5)
  1. YASMIN [Suspect]
     Dosage: UNK
     Dates: start: 20060324
  2. OCELLA [Suspect]
     Dosage: UNK
     Dates: start: 20100201
  3. LORAZEPAM [Concomitant]
     Dosage: 1 MG, UNK
  4. NICOTROL [Concomitant]
  5. NICOPATCH [Concomitant]

REACTIONS (6)
  - Pulmonary embolism [None]
  - Thrombophlebitis superficial [None]
  - Portal vein thrombosis [None]
  - Thrombophlebitis superficial [None]
  - Pulmonary infarction [None]
  - Pulmonary haemorrhage [None]
